FAERS Safety Report 7417586-5 (Version None)
Quarter: 2011Q2

REPORT INFORMATION
  Report Type: 
  Country: None (occurrence: None)
  Receive Date: 20110415
  Receipt Date: 20110411
  Transmission Date: 20111010
  Serious: Yes (Death, Other)
  Sender: FDA-Public Use
  Company Number: BR-GENZYME-FABR-1001887

PATIENT
  Sex: Female
  Weight: 55 kg

DRUGS (1)
  1. FABRAZYME [Suspect]
     Indication: FABRY'S DISEASE
     Dosage: 3 VIALS/MONTH
     Route: 042
     Dates: start: 20100818, end: 20110410

REACTIONS (2)
  - CARDIAC PROCEDURE COMPLICATION [None]
  - PERIPHERAL ISCHAEMIA [None]
